FAERS Safety Report 5276659-6 (Version None)
Quarter: 2007Q1

REPORT INFORMATION
  Report Type: 
  Country: None (occurrence: None)
  Receive Date: 20070327
  Receipt Date: 20070320
  Transmission Date: 20070707
  Serious: Yes (Life-Threatening, Hospitalization)
  Sender: FDA-Public Use
  Company Number: JP-BAYER-200710219BYL

PATIENT
  Age: 82 Year
  Sex: Female
  Weight: 45 kg

DRUGS (5)
  1. ADALAT [Suspect]
     Indication: HYPERTENSION
     Dosage: TOTAL DAILY DOSE: 40 MG  UNIT DOSE: 20 MG
     Route: 048
     Dates: start: 20061023, end: 20070309
  2. BLOPRESS [Concomitant]
     Indication: HYPERTENSION
     Dosage: TOTAL DAILY DOSE: 12 MG  UNIT DOSE: 12 MG
     Route: 048
     Dates: start: 20061221, end: 20070309
  3. ALUKAMET [Concomitant]
     Indication: GASTRIC ULCER
     Dosage: TOTAL DAILY DOSE: 400 MG  UNIT DOSE: 200 MG
     Route: 048
     Dates: end: 20070309
  4. POLLAKISU [Concomitant]
     Indication: NEUROGENIC BLADDER
     Dosage: TOTAL DAILY DOSE: 6 MG  UNIT DOSE: 2 MG
     Route: 048
  5. CEROCRAL [Concomitant]
     Indication: CEREBRAL INFARCTION
     Dosage: TOTAL DAILY DOSE: 60 MG  UNIT DOSE: 20 MG
     Route: 048

REACTIONS (1)
  - SINUS BRADYCARDIA [None]
